FAERS Safety Report 23611465 (Version 3)
Quarter: 2024Q2

REPORT INFORMATION
  Report Type: Report from Study
  Country: DK (occurrence: DK)
  Receive Date: 20240308
  Receipt Date: 20240404
  Transmission Date: 20240716
  Serious: Yes (Hospitalization, Other)
  Sender: FDA-Public Use
  Company Number: DK-BAXTER-2024BAX014019

PATIENT
  Age: 79 Year
  Sex: Male
  Weight: 87.1 kg

DRUGS (64)
  1. CYCLOPHOSPHAMIDE [Suspect]
     Active Substance: CYCLOPHOSPHAMIDE
     Indication: Diffuse large B-cell lymphoma stage IV
     Dosage: 750 MG/M2, C1D1, 3-WEEK CYCLE (21 DAYS) (DAY 1), AS A PART OF RCHOP REGIMEN, LAST DOSE PRIOR TO EVEN
     Route: 042
     Dates: start: 20231212, end: 20231212
  2. CYCLOPHOSPHAMIDE [Suspect]
     Active Substance: CYCLOPHOSPHAMIDE
     Dosage: 562.5 MG/M2, C2D1, ONGOING, 3-WEEK CYCLE (21 DAYS) (DAY 1), AS A PART OF RCHOP REGIMEN, RESTARTED
     Route: 042
     Dates: start: 20240108
  3. CYCLOPHOSPHAMIDE [Suspect]
     Active Substance: CYCLOPHOSPHAMIDE
     Dosage: 562.5 MG/M2, C3D1, 3-WEEK CYCLE (21 DAYS) (DAY 1), AS A PART OF RCHOP REGIMEN
     Route: 042
     Dates: start: 20240130
  4. DOXORUBICIN [Suspect]
     Active Substance: DOXORUBICIN
     Indication: Diffuse large B-cell lymphoma stage IV
     Dosage: 50 MG/M2, C1D1, 3-WEEK CYCLE (21 DAYS) (DAY 1), AS A PART OF RCHOP REGIMEN, LAST DOSE PRIOR TO EVENT
     Route: 042
     Dates: start: 20231212, end: 20231212
  5. DOXORUBICIN [Suspect]
     Active Substance: DOXORUBICIN
     Dosage: 37.5 MG/M2, C2D1-ONWARDS, ONGOING, 3-WEEK CYCLE (21 DAYS) (DAY 1), AS A PART OF RCHOP REGIMEN, RESTA
     Route: 042
     Dates: start: 20240108
  6. DOXORUBICIN [Suspect]
     Active Substance: DOXORUBICIN
     Dosage: 37.5 MG/M2, C3D1, FORMULATION- SOLUTION FOR INFUSION, 3-WEEK CYCLE (21 DAYS) (DAY 1), AS A PART OF R
     Route: 042
     Dates: start: 20240130
  7. EPCORITAMAB [Suspect]
     Active Substance: EPCORITAMAB
     Indication: Diffuse large B-cell lymphoma stage IV
     Dosage: 0.16 MG, PRIMING DOSE, C1D1, WEEKLY, 3-WEEK CYCLE (21 DAYS)
     Route: 058
     Dates: start: 20231212, end: 20231212
  8. EPCORITAMAB [Suspect]
     Active Substance: EPCORITAMAB
     Dosage: 0.8 MG, INTERMEDIATE DOSE, C1D8, WEEKLY, 3-WEEK CYCLE (21 DAYS)
     Route: 058
     Dates: start: 20231219, end: 20231219
  9. EPCORITAMAB [Suspect]
     Active Substance: EPCORITAMAB
     Dosage: 48 MG, FULL DOSE, C1D15, PRIOR TO THE ONSET OF EVENTS, WEEKLY, 3-WEEK CYCLE (21 DAYS)
     Route: 058
     Dates: start: 20231227, end: 20231227
  10. EPCORITAMAB [Suspect]
     Active Substance: EPCORITAMAB
     Dosage: 48 MG, C2D1, RESTARTED, WEEKLY, 3-WEEK CYCLE (21 DAYS), ONGOING
     Route: 058
     Dates: start: 20240108
  11. EPCORITAMAB [Suspect]
     Active Substance: EPCORITAMAB
     Dosage: 48 MG, C2D15-ONWARDS, ONGOING, WEEKLY, 3-WEEK CYCLE (21 DAYS)
     Route: 058
     Dates: start: 20240122, end: 20240122
  12. EPCORITAMAB [Suspect]
     Active Substance: EPCORITAMAB
     Dosage: 48 MG, C3D1, WEEKLY, 3-WEEK CYCLE (21 DAYS)
     Route: 058
     Dates: start: 20240130
  13. RITUXIMAB [Suspect]
     Active Substance: RITUXIMAB
     Indication: Diffuse large B-cell lymphoma stage IV
     Dosage: 375 MG/M2, C1D1, 3-WEEK CYCLE (21 DAYS) (DAY 1), AS A PART OF RCHOP REGIMEN
     Route: 042
     Dates: start: 20231212, end: 20231212
  14. RITUXIMAB [Suspect]
     Active Substance: RITUXIMAB
     Dosage: 375 MG/M2, C2D1-ONWARDS, 3-WEEK CYCLE (21 DAYS) (DAY 1), AS A PART OF RCHOP REGIMEN, ONGOING, RESTAR
     Route: 042
     Dates: start: 20240108
  15. RITUXIMAB [Suspect]
     Active Substance: RITUXIMAB
     Dosage: 375 MG/M2, C3D1, 3-WEEK CYCLE (21 DAYS) (DAY 1), 3-WEEK CYCLE (21 DAYS) (DAY 1), AS A PART OF RCHOP
     Route: 042
     Dates: start: 20240130
  16. VINCRISTINE [Suspect]
     Active Substance: VINCRISTINE
     Indication: Diffuse large B-cell lymphoma stage IV
     Dosage: 1.4 MG/M2, C1D1, 3-WEEK CYCLE (21 DAYS) (DAY 1), AS A PART OF RCHOP REGIMEN(RECOMMENDED CAP OF 2 MG)
     Route: 042
     Dates: start: 20231212, end: 20231212
  17. VINCRISTINE [Suspect]
     Active Substance: VINCRISTINE
     Dosage: 1.4 MG/M2, C2D1-ONWARDS, ONGOING, 3-WEEK CYCLE (21 DAYS) (DAY 1), AS A PART OF RCHOP REGIMEN, RESTAR
     Route: 042
     Dates: start: 20240108
  18. VINCRISTINE [Suspect]
     Active Substance: VINCRISTINE
     Dosage: 1.4 MG/M2, C3D1, 3-WEEK CYCLE (21 DAYS) (DAY 1), AS A PART OF RCHOP REGIMEN(RECOMMENDED CAP OF 2 MG)
     Route: 042
     Dates: start: 20240130
  19. PREDNISONE [Suspect]
     Active Substance: PREDNISONE
     Indication: Diffuse large B-cell lymphoma stage IV
     Dosage: 100 MG, C1D1-D5, 3-WEEK CYCLE (21 DAYS), AS A PART OF RCHOP REGIMEN
     Route: 048
     Dates: start: 20231212, end: 20231216
  20. PREDNISONE [Suspect]
     Active Substance: PREDNISONE
     Dosage: 100 MG, C2D1-D5, 3-WEEK CYCLE (21 DAYS), AS A PART OF RCHOP REGIMEN, RESTARTED
     Route: 048
     Dates: start: 20240108, end: 20240113
  21. PREDNISONE [Suspect]
     Active Substance: PREDNISONE
     Dosage: 100 MG, C3D1-D5, 3-WEEK CYCLE (21 DAYS), AS A PART OF RCHOP REGIMEN
     Route: 048
     Dates: start: 20240130, end: 20240203
  22. PREDNISONE [Suspect]
     Active Substance: PREDNISONE
     Dosage: UNK, C4D1-D5
     Route: 048
     Dates: start: 20240226, end: 20240302
  23. ACETAMINOPHEN [Concomitant]
     Active Substance: ACETAMINOPHEN
     Indication: Premedication
     Dosage: UNK
     Route: 065
     Dates: start: 20231120, end: 20240311
  24. ACETAMINOPHEN [Concomitant]
     Active Substance: ACETAMINOPHEN
     Dosage: UNK
     Route: 065
     Dates: start: 20231219, end: 20231227
  25. ACETAMINOPHEN [Concomitant]
     Active Substance: ACETAMINOPHEN
     Dosage: 1 GRAM
     Route: 048
     Dates: start: 20231227
  26. ACETAMINOPHEN [Concomitant]
     Active Substance: ACETAMINOPHEN
     Dosage: 1 GRAM
     Route: 048
     Dates: start: 20240108
  27. ACETAMINOPHEN [Concomitant]
     Active Substance: ACETAMINOPHEN
     Dosage: 1 GRAM
     Route: 048
     Dates: start: 20240122
  28. ACETAMINOPHEN [Concomitant]
     Active Substance: ACETAMINOPHEN
     Dosage: 1 GRAM
     Route: 048
     Dates: start: 20240130
  29. ACETAMINOPHEN [Concomitant]
     Active Substance: ACETAMINOPHEN
     Dosage: 1 GRAM
     Route: 048
     Dates: start: 20240226
  30. CETIRIZINE [Concomitant]
     Active Substance: CETIRIZINE HYDROCHLORIDE
     Indication: Premedication
     Dosage: 10 MG
     Route: 048
     Dates: start: 20231227, end: 20231227
  31. CETIRIZINE [Concomitant]
     Active Substance: CETIRIZINE HYDROCHLORIDE
     Dosage: 10 MG
     Route: 048
     Dates: start: 20240108, end: 20240108
  32. CETIRIZINE [Concomitant]
     Active Substance: CETIRIZINE HYDROCHLORIDE
     Dosage: 10 MG
     Route: 048
     Dates: start: 20240122, end: 20240122
  33. CETIRIZINE [Concomitant]
     Active Substance: CETIRIZINE HYDROCHLORIDE
     Dosage: 10 MG
     Route: 048
     Dates: start: 20240130, end: 20240130
  34. CETIRIZINE [Concomitant]
     Active Substance: CETIRIZINE HYDROCHLORIDE
     Dosage: 10 MG
     Route: 048
     Dates: start: 20240226
  35. DEXAMETHASONE [Concomitant]
     Active Substance: DEXAMETHASONE
     Indication: Prophylaxis
     Dosage: 15 MG
     Route: 048
     Dates: start: 20231219, end: 20231222
  36. DEXAMETHASONE [Concomitant]
     Active Substance: DEXAMETHASONE
     Dosage: 15 MG
     Route: 048
     Dates: start: 20231227
  37. DEXAMETHASONE [Concomitant]
     Active Substance: DEXAMETHASONE
     Dosage: 15 MG
     Route: 048
     Dates: start: 20240122
  38. DEXAMETHASONE [Concomitant]
     Active Substance: DEXAMETHASONE
     Dosage: UNK
     Route: 065
     Dates: start: 20231220, end: 20231227
  39. PREDNISOLONE [Concomitant]
     Active Substance: PREDNISOLONE
     Indication: Prophylaxis
     Dosage: UNK
     Route: 065
     Dates: start: 20231205, end: 20231212
  40. PREDNISOLONE [Concomitant]
     Active Substance: PREDNISOLONE
     Dosage: UNK
     Route: 065
  41. PREDNISOLONE [Concomitant]
     Active Substance: PREDNISOLONE
     Dosage: 100 MG
     Route: 048
     Dates: start: 20231212, end: 20231216
  42. PREDNISOLONE [Concomitant]
     Active Substance: PREDNISOLONE
     Indication: Prophylaxis
     Dosage: 100 MG
     Route: 048
     Dates: start: 20240108, end: 20240113
  43. PREDNISOLONE [Concomitant]
     Active Substance: PREDNISOLONE
     Dosage: 100 MG
     Route: 048
     Dates: start: 20240130, end: 20240203
  44. PREDNISOLONE [Concomitant]
     Active Substance: PREDNISOLONE
     Dosage: 100 MG
     Route: 048
     Dates: start: 20240226, end: 20240302
  45. ALBUTEROL [Concomitant]
     Active Substance: ALBUTEROL
     Dosage: UNK
     Route: 065
     Dates: start: 20220915, end: 20231205
  46. Zoledronsaeure [Concomitant]
     Dosage: UNK
     Route: 065
     Dates: start: 20231205, end: 20231205
  47. PANTOPRAZOLE SODIUM [Concomitant]
     Active Substance: PANTOPRAZOLE SODIUM
     Dosage: UNK
     Route: 065
     Dates: start: 20220325, end: 20240108
  48. METOCLOPRAMIDE [Concomitant]
     Active Substance: METOCLOPRAMIDE
     Dosage: UNK
     Route: 065
     Dates: start: 20231212, end: 20231217
  49. MOVICOL [Concomitant]
     Active Substance: POLYETHYLENE GLYCOL 3350\POTASSIUM CHLORIDE\SODIUM BICARBONATE\SODIUM CHLORIDE
     Dosage: UNK
     Route: 065
     Dates: start: 20231103, end: 20231205
  50. ONDANSETRON [Concomitant]
     Active Substance: ONDANSETRON
     Dosage: UNK
     Route: 065
     Dates: start: 20231212, end: 20231215
  51. UNIKALK BASIC [Concomitant]
     Dosage: UNK, ONGOING
     Route: 065
     Dates: start: 20180305
  52. FUROSEMIDE [Concomitant]
     Active Substance: FUROSEMIDE
     Dosage: UNK, ONGOING
     Route: 065
     Dates: start: 20220401
  53. SULFAMETHOXAZOLE\TRIMETHOPRIM [Concomitant]
     Active Substance: SULFAMETHOXAZOLE\TRIMETHOPRIM
     Dosage: UNK, ONGOING
     Route: 065
     Dates: start: 20231212
  54. AZITHROMYCIN [Concomitant]
     Active Substance: AZITHROMYCIN
     Dosage: UNK, ONGOING
     Route: 065
     Dates: start: 20220516
  55. VALACYCLOVIR HYDROCHLORIDE [Concomitant]
     Active Substance: VALACYCLOVIR HYDROCHLORIDE
     Dosage: UNK
     Route: 065
     Dates: start: 20231212
  56. ALLOPURINOL [Concomitant]
     Active Substance: ALLOPURINOL
     Dosage: UNK
     Route: 065
     Dates: start: 20231205, end: 20231217
  57. MONTELUKAST [Concomitant]
     Active Substance: MONTELUKAST SODIUM
     Dosage: UNK
     Route: 065
     Dates: start: 20231212, end: 20231212
  58. HYQVIA [Concomitant]
     Active Substance: HUMAN IMMUNOGLOBULIN G\HYALURONIDASE (HUMAN RECOMBINANT)
     Dosage: UNK, ONGOING
     Route: 065
     Dates: start: 20240117
  59. PEGFILGRASTIM [Concomitant]
     Active Substance: PEGFILGRASTIM
     Dosage: UNK
     Route: 065
     Dates: start: 20231215, end: 20231215
  60. OSELTAMIVIR [Concomitant]
     Active Substance: OSELTAMIVIR
     Dosage: UNK, ONGOING
     Route: 065
     Dates: start: 20240214
  61. ZOPICLONE [Concomitant]
     Active Substance: ZOPICLONE
     Dosage: UNK
     Route: 065
     Dates: start: 20240215, end: 20240215
  62. CETIRIZINE HYDROCHLORIDE [Concomitant]
     Active Substance: CETIRIZINE HYDROCHLORIDE
     Dosage: UNK
     Route: 065
     Dates: start: 20240226, end: 20240226
  63. SODIUM CHLORIDE [Concomitant]
     Active Substance: SODIUM CHLORIDE
     Dosage: UNK
     Route: 065
     Dates: start: 20240214, end: 20240214
  64. DIGOXIN [Concomitant]
     Active Substance: DIGOXIN
     Dosage: UNK
     Route: 065
     Dates: start: 20240216, end: 20240217

REACTIONS (7)
  - Cytokine release syndrome [Recovered/Resolved]
  - Pyrexia [Recovered/Resolved]
  - Pyrexia [Recovered/Resolved]
  - Hypoxia [Recovered/Resolved]
  - Hypotension [Recovered/Resolved]
  - Adenovirus infection [Recovered/Resolved]
  - Pyrexia [Recovered/Resolved]

NARRATIVE: CASE EVENT DATE: 20231228
